FAERS Safety Report 16116418 (Version 4)
Quarter: 2019Q3

REPORT INFORMATION
  Report Type: Spontaneous
  Country: JP (occurrence: JP)
  Receive Date: 20190326
  Receipt Date: 20190718
  Transmission Date: 20191004
  Serious: Yes (Life-Threatening, Other)
  Sender: FDA-Public Use
  Company Number: JP-AMGEN-JPNSP2019045028

PATIENT
  Age: 53 Year
  Sex: Male
  Weight: 63 kg

DRUGS (16)
  1. KAYEXALATE [Concomitant]
     Active Substance: SODIUM POLYSTYRENE SULFONATE
     Dosage: 3.09 UNK, Q8H
     Route: 048
     Dates: start: 20190110
  2. CLARITIN [Concomitant]
     Active Substance: LORATADINE
     Dosage: 1 MILLIGRAM, QD
     Route: 048
     Dates: start: 20190110
  3. BIOFERMIN [BACILLUS SUBTILIS;ENTEROCOCCUS FAECALIS;LACTOMIN] [Concomitant]
     Dosage: 1 DOSAGE FORM, QD
     Route: 048
     Dates: start: 20190110
  4. TAKEPRON [Concomitant]
     Active Substance: LANSOPRAZOLE
     Dosage: 15 MILLIGRAM, QD
     Route: 048
     Dates: start: 20190110
  5. BAYASPIRIN [Concomitant]
     Active Substance: ASPIRIN
     Dosage: 100 MILLIGRAM, QD
     Route: 048
     Dates: start: 20190110
  6. BIOFERMIN [LACTOMIN] [Concomitant]
     Dosage: 1 DOSAGE FORM, QD
     Route: 048
     Dates: start: 20190110
  7. JZOLOFT [Concomitant]
     Active Substance: SERTRALINE HYDROCHLORIDE
     Dosage: 25 MILLIGRAM, QD
     Route: 048
     Dates: start: 20190110
  8. PARSABIV [Suspect]
     Active Substance: ETELCALCETIDE HYDROCHLORIDE
     Indication: HYPERPARATHYROIDISM SECONDARY
     Dosage: 5 MILLIGRAM
     Route: 010
     Dates: start: 20190312, end: 20190312
  9. L CARTIN [Concomitant]
     Active Substance: LEVOCARNITINE HYDROCHLORIDE
     Dosage: 10 MILLIGRAM, QD
     Route: 048
     Dates: start: 20190110
  10. SARPOGRELATE HYDROCHLORIDE [Concomitant]
     Active Substance: SARPOGRELATE HYDROCHLORIDE
     Dosage: 100 UNK, Q8H
     Route: 048
     Dates: start: 20190110
  11. FEBURIC [Concomitant]
     Active Substance: FEBUXOSTAT
     Dosage: 10 MILLIGRAM, QD
     Route: 048
     Dates: start: 20190110
  12. RENAGEL [Concomitant]
     Active Substance: SEVELAMER HYDROCHLORIDE
     Dosage: 500 UNK, Q8H
     Route: 048
     Dates: start: 20190110
  13. REBAMIPIDE [Concomitant]
     Active Substance: REBAMIPIDE
     Dosage: 100 UNK, Q8H
     Route: 048
     Dates: start: 20190110
  14. MEILAX [Concomitant]
     Active Substance: ETHYL LOFLAZEPATE
     Dosage: 1 MILLIGRAM, QD
     Route: 048
     Dates: start: 20190110
  15. FOSRENOL [Concomitant]
     Active Substance: LANTHANUM CARBONATE
     Dosage: 250 UNK, Q8H
     Route: 048
     Dates: start: 20190110
  16. CARTARETIN [Concomitant]
     Active Substance: CALCIUM CARBONATE
     Dosage: 1000 UNK, Q8H
     Route: 048
     Dates: start: 20190110

REACTIONS (2)
  - Pancytopenia [Not Recovered/Not Resolved]
  - Drug-induced liver injury [Not Recovered/Not Resolved]

NARRATIVE: CASE EVENT DATE: 20190316
